FAERS Safety Report 7676865-7 (Version None)
Quarter: 2011Q3

REPORT INFORMATION
  Report Type: 
  Country: None (occurrence: None)
  Receive Date: 20110805
  Receipt Date: 20110722
  Transmission Date: 20111222
  Serious: Yes (Death)
  Sender: FDA-Public Use
  Company Number: 2011ST000165

PATIENT
  Age: 81 Year
  Sex: Female

DRUGS (1)
  1. CARNITOR INJECTION (LEVOCARNITINE INJECTION) [Suspect]
     Indication: CARDIAC FAILURE CHRONIC

REACTIONS (2)
  - CARDIAC ARREST [None]
  - BLOOD PRESSURE IMMEASURABLE [None]
